FAERS Safety Report 5350994-5 (Version None)
Quarter: 2007Q2

REPORT INFORMATION
  Report Type: 
  Country: None (occurrence: None)
  Receive Date: 20070606
  Receipt Date: 20070522
  Transmission Date: 20071010
  Serious: Yes (Hospitalization)
  Sender: FDA-Public Use
  Company Number: 2007000953

PATIENT
  Sex: Female
  Weight: 60.782 kg

DRUGS (3)
  1. ERLOTINIB (TABLET) [Suspect]
     Indication: OVARIAN CANCER
     Dosage: 150 MG, ORAL
     Route: 048
     Dates: start: 20070321
  2. BEVACIZUMAB (INJECTION FOR INFUSION) [Suspect]
     Indication: OVARIAN CANCER
     Dosage: 610 MG (Q2W), INTRAVENOUS
     Route: 042
     Dates: start: 20070321
  3. LOVENOX [Concomitant]

REACTIONS (3)
  - HAEMORRHAGE INTRACRANIAL [None]
  - METASTASES TO CENTRAL NERVOUS SYSTEM [None]
  - NAUSEA [None]
